FAERS Safety Report 18359407 (Version 1)
Quarter: 2020Q4

REPORT INFORMATION
  Report Type: Spontaneous
  Country: US (occurrence: US)
  Receive Date: 20201008
  Receipt Date: 20201008
  Transmission Date: 20210114
  Serious: Yes (Death, Other)
  Sender: FDA-Public Use
  Company Number: None

PATIENT
  Age: 26 Year
  Sex: Male

DRUGS (5)
  1. EMTRIVA [Suspect]
     Active Substance: EMTRICITABINE
     Indication: ACQUIRED IMMUNODEFICIENCY SYNDROME
     Route: 048
     Dates: start: 20200925, end: 20201003
  2. TIVICAY 50MG DAILY [Concomitant]
     Dates: start: 20200925, end: 20201003
  3. TENOFOVIR [Suspect]
     Active Substance: TENOFOVIR
     Indication: ACQUIRED IMMUNODEFICIENCY SYNDROME
     Route: 048
     Dates: start: 20200925, end: 20201003
  4. SULFAMETH/TRIMETHOPRIM 800/160MG ON MONDAYS, WEDNESDAYS, AND FRIDAYS [Concomitant]
     Dates: start: 20200925, end: 20201003
  5. AZITHROMYCIN 500MG PO QD [Concomitant]
     Dates: start: 20200925, end: 20201003

REACTIONS (1)
  - Condition aggravated [None]
